FAERS Safety Report 6555018-X (Version None)
Quarter: 2010Q1

REPORT INFORMATION
  Report Type: 
  Country: None (occurrence: None)
  Receive Date: 20100126
  Receipt Date: 20100126
  Transmission Date: 20100710
  Serious: Yes (Life-Threatening, Hospitalization, Disabling, Other)
  Sender: FDA-Public Use
  Company Number: None

PATIENT
  Sex: Female
  Weight: 63 kg

DRUGS (2)
  1. PROPOFOL [Suspect]
     Indication: SHOULDER ARTHROPLASTY
     Dosage: PROPOFOL 200 NOT DOCUMENTED NOT DOCUMENTED I.V., RATE IS NOT DOCUMENT 11/17/2006 O.R. TIME: 18-20 MI
     Route: 042
     Dates: start: 20061117
  2. FENTANYL [Suspect]
     Indication: ROTATOR CUFF REPAIR
     Dosage: FENTYNL 75 NOT DOCUMENTED NOT DOCUMENTED I.V., RATE IS NOT DOCUMENTED 11/17/2006 ANESTHESIA: 36 MIN.
     Route: 042
     Dates: start: 20061117

REACTIONS (28)
  - ACUTE MYOCARDIAL INFARCTION [None]
  - AMNESIA [None]
  - ANOXIA [None]
  - BLOOD PRESSURE FLUCTUATION [None]
  - BRAIN INJURY [None]
  - CELLULITIS [None]
  - CHRONIC FATIGUE SYNDROME [None]
  - COGNITIVE DISORDER [None]
  - ELECTROCARDIOGRAM ST SEGMENT DEPRESSION [None]
  - EXCORIATION [None]
  - FALL [None]
  - HERPES ZOSTER [None]
  - IMPAIRED WORK ABILITY [None]
  - JOINT SPRAIN [None]
  - LEARNING DISORDER [None]
  - NAUSEA [None]
  - OROPHARYNGEAL PAIN [None]
  - OXYGEN SATURATION DECREASED [None]
  - POST-TRAUMATIC STRESS DISORDER [None]
  - PROCEDURAL COMPLICATION [None]
  - REFUSAL OF TREATMENT BY PATIENT [None]
  - RENAL FAILURE ACUTE [None]
  - RENAL FAILURE CHRONIC [None]
  - TEMPOROMANDIBULAR JOINT SYNDROME [None]
  - UNEVALUABLE EVENT [None]
  - UNRESPONSIVE TO STIMULI [None]
  - VOMITING [None]
  - WEIGHT INCREASED [None]
